FAERS Safety Report 5575501-3 (Version None)
Quarter: 2007Q4

REPORT INFORMATION
  Report Type: 
  Country: None (occurrence: None)
  Receive Date: 20071130
  Receipt Date: 20070724
  Transmission Date: 20080405
  Serious: No
  Sender: FDA-Public Use
  Company Number: US200707007174

PATIENT
  Age: 68 Year
  Sex: Female

DRUGS (8)
  1. BYETTA [Suspect]
     Indication: TYPE 2 DIABETES MELLITUS
     Dosage: 5 UG, 2/D, SUBCUTANEOUS ; 10 UG, 2/D, SUBCUTANEOUS ; 20 UG, SUBCUTANEOUS
     Route: 058
     Dates: start: 20061101, end: 20061130
  2. BYETTA [Suspect]
     Indication: TYPE 2 DIABETES MELLITUS
     Dosage: 5 UG, 2/D, SUBCUTANEOUS ; 10 UG, 2/D, SUBCUTANEOUS ; 20 UG, SUBCUTANEOUS
     Route: 058
     Dates: start: 20070724, end: 20070724
  3. BYETTA [Suspect]
     Indication: TYPE 2 DIABETES MELLITUS
     Dosage: 5 UG, 2/D, SUBCUTANEOUS ; 10 UG, 2/D, SUBCUTANEOUS ; 20 UG, SUBCUTANEOUS
     Route: 058
     Dates: start: 20061201
  4. METFORMIN HCL [Concomitant]
  5. GLIPIZIDE [Concomitant]
  6. GEMFIBROZIL [Concomitant]
  7. LEVOTHYROXINE SODIUM [Concomitant]
  8. REGLAN [Concomitant]

REACTIONS (3)
  - ACCIDENTAL OVERDOSE [None]
  - HYPERHIDROSIS [None]
  - INCORRECT DOSE ADMINISTERED [None]
